FAERS Safety Report 9924451 (Version 1)
Quarter: 2014Q1

REPORT INFORMATION
  Report Type: Spontaneous
  Country: US (occurrence: None)
  Receive Date: 20140224
  Receipt Date: 20140224
  Transmission Date: 20141002
  Serious: Yes (Disabling, Other)
  Sender: FDA-Public Use
  Company Number: None

PATIENT
  Age: 55 Year
  Sex: Female
  Weight: 108.41 kg

DRUGS (2)
  1. OMEPRAZOLE [Suspect]
     Indication: GASTRIC ULCER
     Dosage: 20MG/1 PILL ONCE DAILY
     Route: 048
     Dates: start: 20140213, end: 20140222
  2. OMEPRAZOLE [Suspect]
     Indication: EROSIVE OESOPHAGITIS
     Dosage: 20MG/1 PILL ONCE DAILY
     Route: 048
     Dates: start: 20140213, end: 20140222

REACTIONS (2)
  - Abdominal pain [None]
  - Flatulence [None]
